FAERS Safety Report 8035981-0 (Version None)
Quarter: 2012Q1

REPORT INFORMATION
  Report Type: 
  Country: None (occurrence: None)
  Receive Date: 20120111
  Receipt Date: 20120110
  Transmission Date: 20120608
  Serious: Yes (Death)
  Sender: FDA-Public Use
  Company Number: GB-ABBOTT-12P-167-0891658-00

PATIENT
  Age: 45 Year
  Sex: Female
  Weight: 104 kg

DRUGS (1)
  1. HUMIRA [Suspect]
     Indication: JUVENILE ARTHRITIS
     Dosage: CUMULATIVE DOSE TO FIRST REACTION : 8528.69047 MG
     Dates: start: 20031001, end: 20111203

REACTIONS (2)
  - HYPOXIC-ISCHAEMIC ENCEPHALOPATHY [None]
  - CONVULSION [None]
